FAERS Safety Report 5457230-X (Version None)
Quarter: 2007Q3

REPORT INFORMATION
  Report Type: 
  Country: None (occurrence: None)
  Receive Date: 20070918
  Receipt Date: 20070124
  Transmission Date: 20080115
  Serious: Yes (Other)
  Sender: FDA-Public Use
  Company Number: US-ASTRAZENECA-2007UW01507

PATIENT
  Age: 45 Year
  Sex: Female
  Weight: 37.6 kg

DRUGS (9)
  1. SEROQUEL [Suspect]
     Indication: FAILURE TO THRIVE
     Route: 048
  2. SEROQUEL [Suspect]
     Indication: EPILEPSY
     Route: 048
  3. SEROQUEL [Suspect]
     Route: 048
  4. SEROQUEL [Suspect]
     Route: 048
  5. TRAZODONE HCL [Concomitant]
  6. KEPPRA [Concomitant]
  7. SYNTHROID [Concomitant]
  8. PHENERGAN HCL [Concomitant]
  9. HYDROCODEINE [Concomitant]
     Dosage: 10/325 MG

REACTIONS (2)
  - CONVULSION [None]
  - MUSCLE TWITCHING [None]
